FAERS Safety Report 12969855 (Version 8)
Quarter: 2017Q2

REPORT INFORMATION
  Report Type: Report from Study
  Country: FR (occurrence: FR)
  Receive Date: 20161123
  Receipt Date: 20170526
  Transmission Date: 20170830
  Serious: Yes (Hospitalization, Other)
  Sender: FDA-Public Use
  Company Number: FR-JNJFOC-20161117963

PATIENT
  Age: 40 Year
  Sex: Male
  Weight: 75 kg

DRUGS (2)
  1. STELARA [Suspect]
     Active Substance: USTEKINUMAB
     Indication: PSORIASIS
     Route: 058
     Dates: start: 20170424
  2. STELARA [Suspect]
     Active Substance: USTEKINUMAB
     Indication: PSORIASIS
     Route: 058
     Dates: start: 20150326, end: 20161114

REACTIONS (2)
  - Hiatus hernia [Unknown]
  - Helicobacter infection [Unknown]

NARRATIVE: CASE EVENT DATE: 20161103
